FAERS Safety Report 17546781 (Version 2)
Quarter: 2020Q2

REPORT INFORMATION
  Report Type: Spontaneous
  Country: US (occurrence: US)
  Receive Date: 20200316
  Receipt Date: 20200408
  Transmission Date: 20200713
  Serious: No
  Sender: FDA-Public Use
  Company Number: US-SA-2020SA063207

PATIENT
  Age: 57 Year
  Sex: Female

DRUGS (13)
  1. CIPROFLOXACIN. [Concomitant]
     Active Substance: CIPROFLOXACIN
  2. PIMECROLIMUS. [Concomitant]
     Active Substance: PIMECROLIMUS
  3. DUPIXENT [Suspect]
     Active Substance: DUPILUMAB
     Indication: DERMATITIS ATOPIC
     Dosage: 300 MG, QOW
     Route: 058
     Dates: start: 20200213
  4. PREDNISONE. [Concomitant]
     Active Substance: PREDNISONE
  5. AMOXICILLIN. [Concomitant]
     Active Substance: AMOXICILLIN
  6. DOXYCYCLIN [DOXYCYCLINE] [Concomitant]
     Active Substance: DOXYCYCLINE
  7. TRIAMCINOLON [TRIAMCINOLONE ACETONIDE] [Concomitant]
  8. OLOPATADINE. [Concomitant]
     Active Substance: OLOPATADINE
  9. POLYMYXIN B SULFATE AND TRIMETHOPRIM OPHTHALM [Concomitant]
     Active Substance: POLYMYXIN B SULFATE\TRIMETHOPRIM SULFATE
  10. EYE ITCH RELIEF [Concomitant]
     Active Substance: KETOTIFEN FUMARATE
  11. ATENOLOL. [Concomitant]
     Active Substance: ATENOLOL
  12. CEPHALEXIN [CEFALEXIN] [Concomitant]
     Active Substance: CEPHALEXIN
  13. ZOLPIDEM [Concomitant]
     Active Substance: ZOLPIDEM TARTRATE

REACTIONS (3)
  - Dermatitis [Not Recovered/Not Resolved]
  - Rash [Not Recovered/Not Resolved]
  - Unevaluable event [Not Recovered/Not Resolved]

NARRATIVE: CASE EVENT DATE: 202002
